FAERS Safety Report 9806712 (Version 1)
Quarter: 2014Q1

REPORT INFORMATION
  Report Type: Spontaneous
  Country: US (occurrence: US)
  Receive Date: 20140109
  Receipt Date: 20140109
  Transmission Date: 20141002
  Serious: No
  Sender: FDA-Public Use
  Company Number: US-ENDO PHARMACEUTICALS INC.-FORT20130396

PATIENT
  Sex: Male

DRUGS (2)
  1. FORTESTA [Suspect]
     Indication: BLOOD TESTOSTERONE DECREASED
     Route: 061
     Dates: start: 201311
  2. LEVOTHYROXINE SODIUM TABLETS [Concomitant]
     Indication: PRODUCT USED FOR UNKNOWN INDICATION
     Dosage: UNKNOWN
     Route: 048

REACTIONS (2)
  - Underdose [Not Recovered/Not Resolved]
  - Drug ineffective [Not Recovered/Not Resolved]
